FAERS Safety Report 8976983 (Version 1)
Quarter: 2012Q4

REPORT INFORMATION
  Report Type: 
  Country: US (occurrence: US)
  Receive Date: 20121220
  Receipt Date: 20121220
  Transmission Date: 20130627
  Serious: No
  Sender: FDA-Public Use
  Company Number: US-GLAXOSMITHKLINE-A0973035A

PATIENT
  Age: 62 Year
  Sex: Male

DRUGS (21)
  1. SORIATANE [Suspect]
     Indication: PSORIASIS
     Dosage: 25MG Per day
     Route: 048
     Dates: start: 2012, end: 201203
  2. PROVENTIL [Concomitant]
  3. MUPIROCIN [Concomitant]
  4. CLOTRIMAZOLE [Concomitant]
  5. VALSARTAN [Concomitant]
  6. VALSARTAN [Concomitant]
  7. TYLENOL WITH CODEINE [Concomitant]
  8. PERCOCET [Concomitant]
  9. SYNTHROID [Concomitant]
  10. SERTRALINE HCL [Concomitant]
  11. CLOBETASOL [Concomitant]
  12. METOLAZONE [Concomitant]
  13. AMLODIPINE [Concomitant]
  14. ASPIRIN [Concomitant]
  15. GLIPIZIDE [Concomitant]
  16. CARVEDILOL [Concomitant]
  17. LASIX [Concomitant]
  18. SIMVASTATIN [Concomitant]
  19. SPIRONOLACTONE [Concomitant]
  20. UREA CREAM [Concomitant]
  21. TYLENOL [Concomitant]

REACTIONS (1)
  - Alopecia [Recovering/Resolving]
